FAERS Safety Report 12168877 (Version 2)
Quarter: 2016Q1

REPORT INFORMATION
  Report Type: Spontaneous
  Country: KR (occurrence: KR)
  Receive Date: 20160310
  Receipt Date: 20160317
  Transmission Date: 20160526
  Serious: Yes (Other)
  Sender: FDA-Public Use
  Company Number: KR-PFIZER INC-2016142181

PATIENT
  Age: 46 Year
  Sex: Female

DRUGS (2)
  1. PREDNISOLONE. [Suspect]
     Active Substance: PREDNISOLONE
     Indication: LUPUS NEPHRITIS
     Dosage: 1 MG/KG, UNK
     Route: 048
  2. METHYLPREDNISOLONE SODIUM SUCCINATE. [Suspect]
     Active Substance: METHYLPREDNISOLONE SODIUM SUCCINATE
     Dosage: 1 G, UNK (TWO COURSES)

REACTIONS (1)
  - Bronchopulmonary aspergillosis [Recovered/Resolved]
